FAERS Safety Report 17481926 (Version 2)
Quarter: 2020Q2

REPORT INFORMATION
  Report Type: Report from Study
  Country: US (occurrence: US)
  Receive Date: 20200302
  Receipt Date: 20200521
  Transmission Date: 20200713
  Serious: Yes (Hospitalization)
  Sender: FDA-Public Use
  Company Number: US-BAXTER-2020BAX004462

PATIENT
  Age: 11 Year
  Sex: Female
  Weight: 68.1 kg

DRUGS (16)
  1. CYTARABINE. [Suspect]
     Active Substance: CYTARABINE
     Indication: ACUTE LYMPHOCYTIC LEUKAEMIA
     Dosage: FIRST DOSE, DAY 1-4 AND DAY 8-11
     Route: 042
     Dates: start: 20200122
  2. MERCAPTOPURINE. [Suspect]
     Active Substance: MERCAPTOPURINE
     Dosage: DOSAGE FORM: TABLET, FIRST DOSE, ON SUNDAY FOR 1-14
     Route: 048
     Dates: start: 20200122
  3. VINCRISTINE [Suspect]
     Active Substance: VINCRISTINE
     Dosage: THE LAST DOSE PRIOR TO SAES
     Route: 042
     Dates: start: 20200205, end: 20200205
  4. INCB018424 [Suspect]
     Active Substance: RUXOLITINIB
     Dosage: DOSAGE FORM: TABLET, LAST DOSE PRIOR TO SAE SEIZURE
     Route: 048
     Dates: start: 20200204, end: 20200204
  5. MERCAPTOPURINE. [Suspect]
     Active Substance: MERCAPTOPURINE
     Dosage: DOSAGE FORM: TABLET, THE LAST DOSE PRIOR TO SAES
     Route: 048
     Dates: start: 20200205, end: 20200205
  6. INSULIN GLARGINE RECOMBINANT [Concomitant]
     Active Substance: INSULIN GLARGINE
     Indication: PRODUCT USED FOR UNKNOWN INDICATION
     Route: 065
     Dates: start: 20191205
  7. INSULIN LISPRO [Concomitant]
     Active Substance: INSULIN LISPRO
     Indication: PRODUCT USED FOR UNKNOWN INDICATION
     Route: 065
     Dates: start: 20200123
  8. CYCLOPHOSPHAMIDE FOR INJECTION, USP [Suspect]
     Active Substance: CYCLOPHOSPHAMIDE
     Indication: ACUTE LYMPHOCYTIC LEUKAEMIA
     Dosage: FIRST AND THE LAST DOSE PRIOR TO SAES DAY 1
     Route: 042
     Dates: start: 20200122, end: 20200122
  9. CYTARABINE. [Suspect]
     Active Substance: CYTARABINE
     Dosage: LAST DOSE PRIOR TO THE SAES
     Route: 042
     Dates: start: 20200201, end: 20200201
  10. MERCAPTOPURINE. [Suspect]
     Active Substance: MERCAPTOPURINE
     Indication: ACUTE LYMPHOCYTIC LEUKAEMIA
     Dosage: DOSAGE FORM: TABLET, FIRST DOSE MONDAY-SATURDAY
     Route: 048
     Dates: start: 20200122
  11. ASPARAGINASE [Suspect]
     Active Substance: ASPARAGINASE
     Indication: ACUTE LYMPHOCYTIC LEUKAEMIA
     Dosage: FIRST DOSE AND THE LAST DOSE PRIOR TO SAES ON DAY 15
     Route: 042
     Dates: start: 20200207, end: 20200207
  12. INCB018424 [Suspect]
     Active Substance: RUXOLITINIB
     Indication: ACUTE LYMPHOCYTIC LEUKAEMIA
     Dosage: DOSAGE FORM: TABLET, FIRST DOSE
     Route: 048
     Dates: start: 20200122
  13. METHOTREXATE. [Suspect]
     Active Substance: METHOTREXATE
     Indication: ACUTE LYMPHOCYTIC LEUKAEMIA
     Dosage: FIRST DOSE ON DAY 1, 8 AND 15
     Route: 037
     Dates: start: 20200122
  14. METHOTREXATE. [Suspect]
     Active Substance: METHOTREXATE
     Dosage: THE LAST DOSE PRIOR TO SAES
     Route: 037
     Dates: start: 20200205, end: 20200205
  15. VINCRISTINE [Suspect]
     Active Substance: VINCRISTINE
     Indication: ACUTE LYMPHOCYTIC LEUKAEMIA
     Dosage: FIRST DOSE ON DAY 15
     Route: 042
     Dates: start: 20200122
  16. PEGASPARGASE [Suspect]
     Active Substance: PEGASPARGASE
     Indication: ACUTE LYMPHOCYTIC LEUKAEMIA
     Dosage: FIRST AND THE LAST DOSE PRIOR TO SAES ON DAY 15
     Route: 042
     Dates: start: 20200205, end: 20200205

REACTIONS (2)
  - Seizure [Unknown]
  - Altered state of consciousness [Unknown]

NARRATIVE: CASE EVENT DATE: 20200210
